FAERS Safety Report 6739714-7 (Version None)
Quarter: 2010Q2

REPORT INFORMATION
  Report Type: 
  Country: None (occurrence: None)
  Receive Date: 20100525
  Receipt Date: 20100520
  Transmission Date: 20101027
  Serious: Yes (Other)
  Sender: FDA-Public Use
  Company Number: US-RB-009673-10

PATIENT
  Age: 37 Year
  Sex: Female

DRUGS (3)
  1. SUBUTEX [Suspect]
     Route: 060
     Dates: start: 20100101, end: 20100101
  2. SUBUTEX [Suspect]
     Dosage: DOSE VARIES FROM 4 MG - 8 MG DAILY
     Route: 060
     Dates: start: 20100101, end: 20100218
  3. SUBOXONE [Suspect]
     Route: 060
     Dates: start: 20090501, end: 20100101

REACTIONS (3)
  - ABORTION SPONTANEOUS [None]
  - DRUG EXPOSURE DURING PREGNANCY [None]
  - DRUG WITHDRAWAL SYNDROME [None]
